FAERS Safety Report 4635548-8 (Version None)
Quarter: 2005Q2

REPORT INFORMATION
  Report Type: 
  Country: None (occurrence: None)
  Receive Date: 20050413
  Receipt Date: 20050329
  Transmission Date: 20051028
  Serious: Yes (Hospitalization)
  Sender: FDA-Public Use
  Company Number: NZD20050003

PATIENT
  Age: 16 Year
  Sex: Female

DRUGS (1)
  1. NEFAZODONE HCL [Suspect]
     Indication: DEPRESSION
     Dosage: 2.4 G ONCE PO
     Route: 048
     Dates: start: 20030101, end: 20030101

REACTIONS (12)
  - ABDOMINAL TENDERNESS [None]
  - ALANINE AMINOTRANSFERASE INCREASED [None]
  - ASPARTATE AMINOTRANSFERASE INCREASED [None]
  - CARDIOTOXICITY [None]
  - ELECTROCARDIOGRAM QT CORRECTED INTERVAL PROLONGED [None]
  - ELECTROCARDIOGRAM QT PROLONGED [None]
  - GAIT DISTURBANCE [None]
  - HEPATITIS C ANTIBODY POSITIVE [None]
  - HYPOTENSION [None]
  - OVERDOSE [None]
  - SINUS BRADYCARDIA [None]
  - SOMNOLENCE [None]
